FAERS Safety Report 8890617 (Version 2)
Quarter: 2012Q4

REPORT INFORMATION
  Report Type: 
  Country: US (occurrence: US)
  Receive Date: 20121107
  Receipt Date: 20121213
  Transmission Date: 20130627
  Serious: Yes (Other)
  Sender: FDA-Public Use
  Company Number: US-ABBOTT-12P-163-1002449-00

PATIENT
  Age: 70 Year
  Sex: Male

DRUGS (1)
  1. HUMIRA [Suspect]
     Indication: PSORIASIS
     Dosage: First dose
     Dates: start: 20120926, end: 20120926

REACTIONS (4)
  - Anaphylactic shock [Unknown]
  - Lip swelling [Unknown]
  - Swelling face [Unknown]
  - Pharyngeal oedema [Unknown]
